FAERS Safety Report 13738718 (Version 1)
Quarter: 2017Q3

REPORT INFORMATION
  Report Type: Spontaneous
  Country: US (occurrence: US)
  Receive Date: 20170710
  Receipt Date: 20170710
  Transmission Date: 20171127
  Serious: Yes (Other)
  Sender: FDA-Public Use
  Company Number: US-SAOL THERAPEUTICS-2017SAO00264

PATIENT
  Age: 57 Year
  Sex: Female

DRUGS (5)
  1. BACLOFEN. [Suspect]
     Active Substance: BACLOFEN
     Indication: MULTIPLE SCLEROSIS
  2. UNSPECIFIED ANTIBIOTICS [Suspect]
     Active Substance: UNSPECIFIED INGREDIENT
  3. MORPHINE [Suspect]
     Active Substance: MORPHINE
     Indication: MUSCLE SPASTICITY
     Route: 037
  4. BACLOFEN. [Suspect]
     Active Substance: BACLOFEN
     Indication: MUSCLE SPASTICITY
     Route: 037
  5. MORPHINE [Suspect]
     Active Substance: MORPHINE
     Indication: MULTIPLE SCLEROSIS

REACTIONS (2)
  - Device alarm issue [Unknown]
  - Withdrawal syndrome [Unknown]

NARRATIVE: CASE EVENT DATE: 201610
